FAERS Safety Report 16735910 (Version 1)
Quarter: 2019Q3

REPORT INFORMATION
  Report Type: Spontaneous
  Country: DE (occurrence: DE)
  Receive Date: 20190823
  Receipt Date: 20190823
  Transmission Date: 20191005
  Serious: Yes (Death, Life-Threatening, Other)
  Sender: FDA-Public Use
  Company Number: DE-MYLANLABS-2019M1078577

PATIENT
  Age: 60 Year
  Sex: Male

DRUGS (4)
  1. PARACODIN /00063001/ [Suspect]
     Active Substance: DIHYDROCODEINE
     Indication: BRONCHITIS
     Dosage: 30 GTT, PRN
     Route: 048
     Dates: start: 20030131, end: 20030203
  2. DICLOFENAC [Suspect]
     Active Substance: DICLOFENAC
     Indication: PHLEBITIS
     Dosage: 150 MG, QD
     Route: 048
     Dates: start: 20030120, end: 20030203
  3. MARCUMAR [Suspect]
     Active Substance: PHENPROCOUMON
     Indication: VENOUS THROMBOSIS
     Dosage: AS NECESSARY
     Route: 048
  4. DOXY                               /00055701/ [Concomitant]
     Indication: BRONCHITIS
     Dosage: 1 DF, QD
     Route: 065
     Dates: start: 20030131, end: 20030203

REACTIONS (1)
  - Pulmonary embolism [Fatal]

NARRATIVE: CASE EVENT DATE: 20030203
